FAERS Safety Report 25522435 (Version 1)
Quarter: 2025Q3

REPORT INFORMATION
  Report Type: Spontaneous
  Country: EU (occurrence: EU)
  Receive Date: 20250707
  Receipt Date: 20250707
  Transmission Date: 20251020
  Serious: No
  Sender: ALKEM
  Company Number: EU-ALKEM LABORATORIES LIMITED-FR-ALKEM-2025-03579

PATIENT
  Age: 86 Year
  Sex: Female

DRUGS (4)
  1. DRONABINOL [Suspect]
     Active Substance: DRONABINOL
     Indication: Neuralgia
     Dosage: 2.5 MILLIGRAM, BID (CAPSULE MOLLE)
     Route: 065
     Dates: start: 20250206, end: 20250320
  2. BISOPROLOL [Concomitant]
     Active Substance: BISOPROLOL
     Indication: Hypertension
     Dosage: 1.5 MILLIGRAM, QD (DAILY)
     Route: 065
  3. DULOXETINE [Concomitant]
     Active Substance: DULOXETINE
     Indication: Radiation associated pain
     Dosage: 60 MILLIGRAM, QD (DAILY)
     Route: 065
     Dates: start: 2014
  4. PREGABALIN [Concomitant]
     Active Substance: PREGABALIN
     Indication: Radiation associated pain
     Dosage: 200 MILLIGRAM, QD (DAILY)
     Route: 065
     Dates: start: 2014

REACTIONS (3)
  - Asthenia [Recovered/Resolved]
  - Disturbance in attention [Recovered/Resolved]
  - Memory impairment [Recovered/Resolved]

NARRATIVE: CASE EVENT DATE: 20250206
